FAERS Safety Report 8443403-0 (Version None)
Quarter: 2012Q2

REPORT INFORMATION
  Report Type: 
  Country: None (occurrence: None)
  Receive Date: 20120618
  Receipt Date: 20120605
  Transmission Date: 20120825
  Serious: Yes (Hospitalization)
  Sender: FDA-Public Use
  Company Number: IN-RANBAXY-2012R1-57026

PATIENT
  Age: 55 Year
  Sex: Female

DRUGS (5)
  1. LITHIUM CARBONATE [Concomitant]
     Indication: PRODUCT USED FOR UNKNOWN INDICATION
     Dosage: 600 MG/DAY
     Route: 065
  2. SODIUM VALPROATE [Concomitant]
     Indication: PRODUCT USED FOR UNKNOWN INDICATION
     Dosage: 1000 MG/DAY
     Route: 065
  3. ACYCLOVIR [Suspect]
     Indication: VARICELLA
     Dosage: 1600MG/D
     Route: 048
  4. QUETIAPINE [Concomitant]
     Indication: PRODUCT USED FOR UNKNOWN INDICATION
     Dosage: 300MG
     Route: 065
  5. LEVOTHYROXINE SODIUM [Concomitant]
     Indication: PRODUCT USED FOR UNKNOWN INDICATION
     Dosage: 100 MCG/ DAY
     Route: 065

REACTIONS (1)
  - HYPOMANIA [None]
